FAERS Safety Report 14271904 (Version 2)
Quarter: 2017Q4

REPORT INFORMATION
  Report Type: Report from Study
  Country: MX (occurrence: MX)
  Receive Date: 20171212
  Receipt Date: 20171226
  Transmission Date: 20180321
  Serious: Yes (Other)
  Sender: FDA-Public Use
  Company Number: PHHY2017MX184180

PATIENT
  Sex: Female
  Weight: 59 kg

DRUGS (2)
  1. METOPROLOL. [Suspect]
     Active Substance: METOPROLOL
     Indication: CARDIAC DISORDER
     Dosage: 0.5 DF, QD
     Route: 048
     Dates: end: 20171202
  2. METOPROLOL. [Suspect]
     Active Substance: METOPROLOL
     Indication: HYPERTENSION

REACTIONS (8)
  - Pain in extremity [Unknown]
  - Chest pain [Unknown]
  - Type 2 diabetes mellitus [Recovering/Resolving]
  - Hypertension [Recovering/Resolving]
  - Osteoporosis [Recovering/Resolving]
  - Varicose vein [Unknown]
  - Arthropathy [Not Recovered/Not Resolved]
  - Wrong technique in product usage process [Recovered/Resolved]
